FAERS Safety Report 9714236 (Version 2)
Quarter: 2013Q4

REPORT INFORMATION
  Report Type: Spontaneous
  Country: US (occurrence: US)
  Receive Date: 20131126
  Receipt Date: 20131126
  Transmission Date: 20140711
  Serious: Yes (Disabling, Other)
  Sender: FDA-Public Use
  Company Number: US-GILEAD-2008-0019301

PATIENT
  Age: 82 Year
  Sex: Female
  Weight: 94.35 kg

DRUGS (9)
  1. LETAIRIS [Suspect]
     Indication: PULMONARY ARTERIAL HYPERTENSION
     Route: 048
     Dates: start: 20080923, end: 20081104
  2. REVATIO [Concomitant]
     Indication: PULMONARY ARTERIAL HYPERTENSION
     Dates: start: 20081112
  3. WARFARIN [Concomitant]
  4. LASIX [Concomitant]
     Indication: OEDEMA
  5. LASIX [Concomitant]
     Indication: HYPERTENSION
  6. SPIRONOLACTONE [Concomitant]
     Indication: HYPERTENSION
  7. TOPROL [Concomitant]
     Indication: HYPERTENSION
  8. LANOXIN [Concomitant]
     Indication: ARRHYTHMIA
  9. SYNTHROID [Concomitant]
     Indication: HYPOTHYROIDISM

REACTIONS (2)
  - Dyspnoea [Not Recovered/Not Resolved]
  - Oedema [Not Recovered/Not Resolved]
